FAERS Safety Report 6520622-1 (Version None)
Quarter: 2009Q4

REPORT INFORMATION
  Report Type: 
  Country: None (occurrence: None)
  Receive Date: 20091229
  Receipt Date: 20091216
  Transmission Date: 20100525
  Serious: Yes (Hospitalization)
  Sender: FDA-Public Use
  Company Number: JP-BRISTOL-MYERS SQUIBB COMPANY-14904585

PATIENT
  Age: 6 Decade
  Sex: Male

DRUGS (2)
  1. MAXIPIME [Suspect]
  2. FOSFOMYCIN [Concomitant]

REACTIONS (2)
  - MEGACOLON [None]
  - PSEUDOMEMBRANOUS COLITIS [None]
